FAERS Safety Report 12329262 (Version 2)
Quarter: 2016Q2

REPORT INFORMATION
  Report Type: Report from Study
  Country: CA (occurrence: CA)
  Receive Date: 20160503
  Receipt Date: 20160513
  Transmission Date: 20160815
  Serious: Yes (Other)
  Sender: FDA-Public Use
  Company Number: CA-GILEAD-2016-0206732

PATIENT
  Age: 69 Year
  Sex: Female

DRUGS (4)
  1. PREDNISONE. [Suspect]
     Active Substance: PREDNISONE
     Indication: PRODUCT USED FOR UNKNOWN INDICATION
     Route: 065
  2. LEDIPASVIR/SOFOSBUVIR [Suspect]
     Active Substance: LEDIPASVIR\SOFOSBUVIR
     Indication: HEPATITIS C
     Dosage: 1 DF, UNK
     Route: 048
     Dates: start: 20160331
  3. MICARDIS [Concomitant]
     Active Substance: TELMISARTAN
  4. TECTA [Concomitant]
     Active Substance: PANTOPRAZOLE MAGNESIUM

REACTIONS (20)
  - Dizziness [Unknown]
  - Myasthenia gravis [Unknown]
  - Gait disturbance [Not Recovered/Not Resolved]
  - Nasal congestion [Unknown]
  - Product difficult to swallow [Unknown]
  - Balance disorder [Unknown]
  - Neck pain [Unknown]
  - Dyspnoea [Unknown]
  - Fatigue [Unknown]
  - Dyspepsia [Unknown]
  - Poor quality sleep [Unknown]
  - Panic attack [Recovered/Resolved]
  - Wrong technique in product usage process [Unknown]
  - Blood pressure increased [Recovered/Resolved]
  - Blood glucose increased [Recovered/Resolved]
  - Stress [Unknown]
  - Nervousness [Unknown]
  - Peak expiratory flow rate decreased [Unknown]
  - Rhinorrhoea [Unknown]
  - Heart rate decreased [Unknown]

NARRATIVE: CASE EVENT DATE: 20160331
